FAERS Safety Report 15276386 (Version 1)
Quarter: 2018Q4

REPORT INFORMATION
  Report Type: Spontaneous
  Country: FR (occurrence: FR)
  Receive Date: 20180814
  Receipt Date: 20180814
  Transmission Date: 20190204
  Serious: Yes (Other)
  Sender: FDA-Public Use
  Company Number: FR-ASCEND THERAPEUTICS-2053701

PATIENT
  Age: 30 Year
  Sex: Female

DRUGS (5)
  1. MINIRIN (DESMOPRESSIN) [Concomitant]
     Route: 048
  2. ANDROCUR (CYPROTERONE ACETATE) [Suspect]
     Active Substance: CYPROTERONE ACETATE
     Route: 048
     Dates: start: 2007, end: 2017
  3. PROVAMES (ESTRADIOL) [Suspect]
     Active Substance: ESTRADIOL
     Route: 048
     Dates: start: 2017, end: 2017
  4. ESTROGEL [Suspect]
     Active Substance: ESTRADIOL
     Indication: HYPOPITUITARISM
     Route: 061
     Dates: start: 2007
  5. LEVOTHYROX (LEVOTHYROXINE SODIUM) [Concomitant]
     Active Substance: LEVOTHYROXINE SODIUM
     Route: 048

REACTIONS (1)
  - Meningioma [Recovering/Resolving]

NARRATIVE: CASE EVENT DATE: 201705
